FAERS Safety Report 25898906 (Version 1)
Quarter: 2025Q4

REPORT INFORMATION
  Report Type: Spontaneous
  Country: US (occurrence: US)
  Receive Date: 20251009
  Receipt Date: 20251009
  Transmission Date: 20260117
  Serious: No
  Sender: ALVOGEN
  Company Number: US-ALVOGEN-2024095613

PATIENT
  Age: 87 Year
  Sex: Female

DRUGS (1)
  1. LOREEV XR [Suspect]
     Active Substance: LORAZEPAM
     Indication: Product used for unknown indication
     Dosage: STRENGTH: 2MG

REACTIONS (1)
  - Rash [Unknown]
